FAERS Safety Report 7939665-6 (Version None)
Quarter: 2011Q4

REPORT INFORMATION
  Report Type: 
  Country: None (occurrence: None)
  Receive Date: 20111125
  Receipt Date: 20111116
  Transmission Date: 20120403
  Serious: Yes (Other)
  Sender: FDA-Public Use
  Company Number: PHEH2011US009676

PATIENT
  Age: 77 Year
  Sex: Male

DRUGS (7)
  1. ZORTRESS [Suspect]
     Indication: RENAL TRANSPLANT
     Dosage: 75 MG, BID
     Route: 048
     Dates: start: 20110826
  2. FLOMAX [Concomitant]
     Dosage: UNK UKN, UNK
  3. HYDROCHLOROTHIAZIDE [Concomitant]
     Dosage: UNK UKN, UNK
  4. MYCELEX [Concomitant]
     Dosage: UNK UKN, UNK
  5. SIMVASTATIN [Concomitant]
     Dosage: UNK UKN, UNK
  6. FERROUS SULFATE TAB [Concomitant]
     Dosage: UNK UKN, UNK
  7. VALCYTE [Concomitant]
     Dosage: UNK UKN, UNK

REACTIONS (2)
  - HAEMOLYSIS [None]
  - HAEMOGLOBIN DECREASED [None]
